FAERS Safety Report 7309076-5 (Version None)
Quarter: 2011Q1

REPORT INFORMATION
  Report Type: 
  Country: None (occurrence: None)
  Receive Date: 20110223
  Receipt Date: 20110208
  Transmission Date: 20110831
  Serious: Yes (Hospitalization)
  Sender: FDA-Public Use
  Company Number: TR-TYCO HEALTHCARE/MALLINCKRODT-T201100282

PATIENT
  Age: 54 Year
  Sex: Male

DRUGS (4)
  1. EXALGO [Suspect]
     Dosage: 16 MG, QD
     Route: 048
  2. EXALGO [Suspect]
     Indication: PAIN
     Dosage: 8 MG, QD
     Route: 048
  3. EXALGO [Suspect]
     Dosage: 32 MG, QD
     Route: 048
  4. EXALGO [Suspect]
     Dosage: 16 MG, QD
     Route: 048

REACTIONS (1)
  - RHEUMATOID ARTHRITIS [None]
